FAERS Safety Report 12737401 (Version 2)
Quarter: 2016Q3

REPORT INFORMATION
  Report Type: Report from Study
  Country: PA (occurrence: PA)
  Receive Date: 20160912
  Receipt Date: 20160928
  Transmission Date: 20161109
  Serious: Yes (Other)
  Sender: FDA-Public Use
  Company Number: PHHY2016PA023291

PATIENT
  Age: 51 Year
  Sex: Female
  Weight: 78.5 kg

DRUGS (6)
  1. VERAPAMIL [Concomitant]
     Active Substance: VERAPAMIL HYDROCHLORIDE
     Indication: HYPERTENSION
     Dosage: UNK UNK, QD
     Route: 065
  2. PERINDOPRIL [Concomitant]
     Active Substance: PERINDOPRIL
     Indication: HYPERTENSION
     Route: 065
  3. CARVEDILOL. [Concomitant]
     Active Substance: CARVEDILOL
     Indication: PRODUCT USED FOR UNKNOWN INDICATION
     Dosage: 6.25 MG, BID
     Route: 065
  4. SANDOSTATIN LAR DEPOT [Suspect]
     Active Substance: OCTREOTIDE ACETATE
     Indication: ACROMEGALY
     Dosage: 1 EACH MONTH
     Route: 030
     Dates: start: 201507
  5. METFORMIN [Concomitant]
     Active Substance: METFORMIN HYDROCHLORIDE
     Indication: DIABETES MELLITUS
     Dosage: 850 MG, TID
     Route: 065
  6. SANDOSTATIN LAR DEPOT [Suspect]
     Active Substance: OCTREOTIDE ACETATE
     Indication: PITUITARY TUMOUR BENIGN

REACTIONS (17)
  - Pelvic pain [Unknown]
  - Insomnia [Unknown]
  - Urinary retention [Unknown]
  - Oedema peripheral [Unknown]
  - Rhinorrhoea [Unknown]
  - Haemorrhage [Unknown]
  - Blood growth hormone increased [Unknown]
  - Brain neoplasm [Unknown]
  - Skin burning sensation [Unknown]
  - Headache [Unknown]
  - Urinary incontinence [Unknown]
  - Abdominal pain lower [Unknown]
  - Proteinuria [Unknown]
  - Fatigue [Unknown]
  - Face oedema [Unknown]
  - Anaemia [Unknown]
  - Dysuria [Unknown]
